FAERS Safety Report 24161616 (Version 1)
Quarter: 2024Q3

REPORT INFORMATION
  Report Type: Report from Study
  Country: US (occurrence: None)
  Receive Date: 20240801
  Receipt Date: 20240801
  Transmission Date: 20241016
  Serious: Yes (Other)
  Sender: ASTRAZENECA
  Company Number: 2021A790681

PATIENT
  Sex: Male

DRUGS (1)
  1. LYNPARZA [Suspect]
     Active Substance: OLAPARIB
     Indication: Prostate cancer
     Route: 048
     Dates: start: 20211014

REACTIONS (5)
  - Blood pressure decreased [Unknown]
  - Renal failure [Unknown]
  - Hepatic failure [Unknown]
  - Myocardial infarction [Unknown]
  - Off label use [Unknown]
